FAERS Safety Report 5839272-5 (Version None)
Quarter: 2008Q3

REPORT INFORMATION
  Report Type: 
  Country: None (occurrence: None)
  Receive Date: 20080808
  Receipt Date: 20080729
  Transmission Date: 20090109
  Serious: Yes (Hospitalization)
  Sender: FDA-Public Use
  Company Number: JP-PFIZER INC-2008063650

PATIENT
  Age: 56 Year
  Sex: Male

DRUGS (6)
  1. MEDROL [Suspect]
     Indication: RETINITIS
  2. ACYCLOVIR [Suspect]
  3. TACROLIMUS [Concomitant]
  4. CELLCEPT [Concomitant]
  5. GANCICLOVIR [Concomitant]
  6. CEFTAZIDIME [Concomitant]

REACTIONS (1)
  - PNEUMONIA CRYPTOCOCCAL [None]
